FAERS Safety Report 18704441 (Version 1)
Quarter: 2021Q1

REPORT INFORMATION
  Report Type: Spontaneous
  Country: FR (occurrence: FR)
  Receive Date: 20210106
  Receipt Date: 20210106
  Transmission Date: 20210419
  Serious: Yes (Hospitalization, Other)
  Sender: FDA-Public Use
  Company Number: FR-PFIZER INC-2021004124

PATIENT
  Age: 62 Year
  Sex: Male
  Weight: 73 kg

DRUGS (3)
  1. FLECAINE [Concomitant]
     Active Substance: FLECAINIDE
     Dosage: UNK
     Route: 065
  2. BRAFTOVI [Suspect]
     Active Substance: ENCORAFENIB
     Indication: METASTATIC MALIGNANT MELANOMA
     Dosage: 4 DF/DAY
     Route: 048
     Dates: start: 20200916, end: 20201102
  3. MEKTOVI [Suspect]
     Active Substance: BINIMETINIB
     Indication: METASTATIC MALIGNANT MELANOMA
     Dosage: 90 MG/DAY
     Route: 048
     Dates: start: 20200916, end: 20201027

REACTIONS (5)
  - Seborrhoeic keratosis [Recovering/Resolving]
  - Xanthopsia [Recovered/Resolved]
  - Serous retinopathy [Recovering/Resolving]
  - Keratosis pilaris [Recovering/Resolving]
  - Off label use [Unknown]

NARRATIVE: CASE EVENT DATE: 20200916
